FAERS Safety Report 10211140 (Version 1)
Quarter: 2014Q2

REPORT INFORMATION
  Report Type: Spontaneous
  Country: US (occurrence: None)
  Receive Date: 20140530
  Receipt Date: 20140530
  Transmission Date: 20141212
  Serious: Yes (Hospitalization)
  Sender: FDA-Public Use
  Company Number: None

PATIENT
  Age: 78 Year
  Sex: Female
  Weight: 72.58 kg

DRUGS (3)
  1. DULOXETINE [Suspect]
     Indication: OSTEOARTHRITIS
     Dosage: FIRST DOSE
  2. ALBUTEROL [Concomitant]
  3. OMEPRAZOLE [Concomitant]

REACTIONS (5)
  - Blood pressure increased [None]
  - Sinus tachycardia [None]
  - Atrial fibrillation [None]
  - Hyperhidrosis [None]
  - Vomiting [None]
